FAERS Safety Report 5042575-8 (Version None)
Quarter: 2006Q2

REPORT INFORMATION
  Report Type: 
  Country: None (occurrence: None)
  Receive Date: 20060627
  Receipt Date: 20060613
  Transmission Date: 20061013
  Serious: Yes (Hospitalization)
  Sender: FDA-Public Use
  Company Number: 2006075975

PATIENT
  Age: 44 Year
  Sex: Female
  Weight: 90 kg

DRUGS (3)
  1. CYTOTEC [Suspect]
     Indication: UTERINE MALPOSITION
     Dates: start: 20060422, end: 20060422
  2. AMOXICILLIN TRIHYDRATE (CLAVULANATE POTASSIUM (CLAVULANATE POTASSIUM, [Concomitant]
     Indication: PROPHYLAXIS
     Dosage: 2 GRAM (2 GRAM), ORAL
     Route: 048
     Dates: start: 20060422, end: 20060422
  3. SYNTOCINON [Concomitant]

REACTIONS (7)
  - ANAPHYLACTIC SHOCK [None]
  - DERMATITIS BULLOUS [None]
  - LETHARGY [None]
  - MALAISE [None]
  - OEDEMA [None]
  - PRURITUS [None]
  - VOMITING [None]
